FAERS Safety Report 15237924 (Version 1)
Quarter: 2018Q3

REPORT INFORMATION
  Report Type: Spontaneous
  Country: US (occurrence: US)
  Receive Date: 20180710
  Receipt Date: 20180710
  Transmission Date: 20181010
  Serious: Yes (Hospitalization)
  Sender: FDA-Public Use
  Company Number: None

PATIENT
  Age: 65 Year
  Sex: Female
  Weight: 79.3 kg

DRUGS (6)
  1. OLAPARIB. [Suspect]
     Active Substance: OLAPARIB
     Indication: OVARIAN CANCER RECURRENT
     Route: 048
     Dates: start: 20171214, end: 20180411
  2. OMPERAZOLE [Concomitant]
     Active Substance: OMEPRAZOLE
  3. METHYLPREDNISOLONE. [Concomitant]
     Active Substance: METHYLPREDNISOLONE
  4. TREMELIMUMAB. [Suspect]
     Active Substance: TREMELIMUMAB
     Indication: OVARIAN CANCER RECURRENT
     Route: 042
     Dates: start: 20171214, end: 20180315
  5. PREDNISONE. [Concomitant]
     Active Substance: PREDNISONE
  6. PANTOPRAZOLE [Concomitant]
     Active Substance: PANTOPRAZOLE

REACTIONS (11)
  - Oral herpes [None]
  - Candida infection [None]
  - Nausea [None]
  - Abdominal pain [None]
  - Weight decreased [None]
  - Dysgeusia [None]
  - Drug ineffective [None]
  - Hepatitis viral [None]
  - Vomiting [None]
  - Decreased appetite [None]
  - Oral pain [None]

NARRATIVE: CASE EVENT DATE: 20180503
